FAERS Safety Report 8248174-9 (Version None)
Quarter: 2012Q1

REPORT INFORMATION
  Report Type: 
  Country: None (occurrence: None)
  Receive Date: 20120330
  Receipt Date: 20120323
  Transmission Date: 20120608
  Serious: Yes (Hospitalization, Other)
  Sender: FDA-Public Use
  Company Number: SE-JNJFOC-20120313609

PATIENT
  Sex: Female
  Weight: 82 kg

DRUGS (15)
  1. ALVEDON [Concomitant]
  2. OXYCONTIN [Concomitant]
  3. RIVAROXABAN [Suspect]
     Indication: KNEE ARTHROPLASTY
     Route: 048
     Dates: start: 20120227, end: 20120229
  4. AMLODIPINE [Concomitant]
  5. CLOXACILLIN SODIUM [Concomitant]
  6. RIVAROXABAN [Suspect]
     Indication: THROMBOSIS PROPHYLAXIS
     Route: 048
     Dates: start: 20120227, end: 20120229
  7. SIMVASTATIN [Concomitant]
  8. CELEBREX [Concomitant]
  9. BETOLVIDON [Concomitant]
     Route: 048
  10. SALURES [Concomitant]
     Route: 048
  11. METOPROLOL SUCCINATE [Concomitant]
  12. ZOLPIDEM [Concomitant]
  13. LOSARTAN POTASSIUM [Concomitant]
  14. OMEPRAZOLE [Concomitant]
  15. CYKLOKAPRON [Concomitant]

REACTIONS (5)
  - PULMONARY EMBOLISM [None]
  - HYPERTENSION [None]
  - NAUSEA [None]
  - TACHYCARDIA [None]
  - PYREXIA [None]
